FAERS Safety Report 7156392-6 (Version None)
Quarter: 2010Q4

REPORT INFORMATION
  Report Type: 
  Country: None (occurrence: None)
  Receive Date: 20101214
  Receipt Date: 20101028
  Transmission Date: 20110411
  Serious: Yes (Death)
  Sender: FDA-Public Use
  Company Number: NZ-ROCHE-737360

PATIENT
  Sex: Female
  Weight: 65 kg

DRUGS (4)
  1. PEGASYS [Suspect]
     Route: 058
     Dates: start: 20100426, end: 20101004
  2. RIBAVARIN [Suspect]
     Dosage: DOSE REPORTED AS DAILY DIVIDED DOSE
     Route: 048
     Dates: start: 20100426, end: 20101004
  3. ZOPICLONE [Concomitant]
     Dosage: FREQUENCY REPORTED AS NOCTE
     Route: 048
     Dates: end: 20101001
  4. FLUOXETINE [Concomitant]
     Route: 048
     Dates: end: 20101001

REACTIONS (1)
  - ROAD TRAFFIC ACCIDENT [None]
